FAERS Safety Report 8168504-6 (Version None)
Quarter: 2012Q1

REPORT INFORMATION
  Report Type: 
  Country: None (occurrence: None)
  Receive Date: 20120227
  Receipt Date: 20120227
  Transmission Date: 20120608
  Serious: Yes (Other)
  Sender: FDA-Public Use
  Company Number: None

PATIENT
  Age: 35 Year
  Sex: Female
  Weight: 83.914 kg

DRUGS (1)
  1. MIRENA [Suspect]
     Indication: CONTRACEPTION
     Dosage: 20MCG
     Route: 005
     Dates: start: 20110901, end: 20120221

REACTIONS (8)
  - PAIN IN EXTREMITY [None]
  - OVARIAN CYST [None]
  - MIGRAINE [None]
  - MUSCLE SPASMS [None]
  - ABDOMINAL DISTENSION [None]
  - CHEST PAIN [None]
  - PAIN [None]
  - ACNE CYSTIC [None]
